FAERS Safety Report 17517988 (Version 1)
Quarter: 2020Q1

REPORT INFORMATION
  Report Type: Spontaneous
  Country: CH (occurrence: CH)
  Receive Date: 20200309
  Receipt Date: 20200309
  Transmission Date: 20200409
  Serious: Yes (Life-Threatening, Congenital Anomaly, Other)
  Sender: FDA-Public Use
  Company Number: CH-ASTRAZENECA-2020SE33557

PATIENT
  Age: 926 Month
  Sex: Female

DRUGS (12)
  1. SEROQUEL [Interacting]
     Active Substance: QUETIAPINE FUMARATE
     Route: 048
     Dates: start: 20200119, end: 20200221
  2. RIVOTRIL [Concomitant]
     Active Substance: CLONAZEPAM
     Route: 065
     Dates: end: 20200225
  3. TRAMAL [Interacting]
     Active Substance: TRAMADOL
     Route: 048
     Dates: start: 20200217, end: 20200221
  4. LEXOTANIL [Concomitant]
     Active Substance: BROMAZEPAM
     Route: 065
  5. SEROQUEL [Suspect]
     Active Substance: QUETIAPINE FUMARATE
     Route: 048
     Dates: end: 20200214
  6. SEROQUEL [Interacting]
     Active Substance: QUETIAPINE FUMARATE
     Route: 048
     Dates: start: 20200118, end: 20200218
  7. SEROQUEL [Interacting]
     Active Substance: QUETIAPINE FUMARATE
     Dosage: 100 MG 2 DAYS
     Route: 048
     Dates: start: 20200115, end: 20200217
  8. CALCIMAGON D3 [Concomitant]
     Active Substance: CALCIUM\CHOLECALCIFEROL
     Route: 065
     Dates: start: 20200216
  9. SEROQUEL [Interacting]
     Active Substance: QUETIAPINE FUMARATE
     Route: 048
     Dates: start: 20200121
  10. TRAMAL [Interacting]
     Active Substance: TRAMADOL
     Route: 048
     Dates: end: 20200214
  11. CYMBALTA [Interacting]
     Active Substance: DULOXETINE HYDROCHLORIDE
     Route: 048
  12. NPLATE [Concomitant]
     Active Substance: ROMIPLOSTIM
     Route: 065
     Dates: start: 20200119

REACTIONS (2)
  - Serotonin syndrome [Recovering/Resolving]
  - Drug interaction [Recovered/Resolved]

NARRATIVE: CASE EVENT DATE: 202002
